FAERS Safety Report 10170843 (Version 1)
Quarter: 2014Q2

REPORT INFORMATION
  Report Type: Spontaneous
  Country: BR (occurrence: BR)
  Receive Date: 20140514
  Receipt Date: 20140514
  Transmission Date: 20141212
  Serious: Yes (Hospitalization)
  Sender: FDA-Public Use
  Company Number: BR-ROCHE-1396544

PATIENT
  Age: 66 Year
  Sex: Female
  Weight: 69.9 kg

DRUGS (5)
  1. HERCEPTIN [Suspect]
     Indication: BREAST CANCER METASTATIC
     Route: 065
  2. PERJETA [Suspect]
     Indication: BREAST CANCER METASTATIC
     Route: 065
  3. DOCETAXEL [Suspect]
     Indication: BREAST CANCER METASTATIC
     Route: 065
  4. ENALAPRIL MALEATE [Concomitant]
     Route: 048
  5. OMEPRAZOLE [Concomitant]
     Indication: GASTRITIS
     Route: 048

REACTIONS (3)
  - Febrile neutropenia [Not Recovered/Not Resolved]
  - Acute respiratory distress syndrome [Not Recovered/Not Resolved]
  - Respiratory failure [Not Recovered/Not Resolved]
